FAERS Safety Report 16225808 (Version 2)
Quarter: 2019Q2

REPORT INFORMATION
  Report Type: Spontaneous
  Country: US (occurrence: US)
  Receive Date: 20190422
  Receipt Date: 20190426
  Transmission Date: 20190711
  Serious: No
  Sender: FDA-Public Use
  Company Number: PHEH2019US016462

PATIENT
  Sex: Female

DRUGS (3)
  1. INSULIN [Concomitant]
     Active Substance: INSULIN NOS
     Route: 065
  2. RECLAST [Suspect]
     Active Substance: ZOLEDRONIC ACID
     Indication: OSTEOPOROSIS
  3. RECLAST [Suspect]
     Active Substance: ZOLEDRONIC ACID
     Indication: PRODUCT USED FOR UNKNOWN INDICATION
     Dosage: UNK
     Route: 065
     Dates: start: 20190401

REACTIONS (8)
  - Breast pain [Unknown]
  - Pain [Recovering/Resolving]
  - Back pain [Unknown]
  - Thirst [Unknown]
  - Feeling abnormal [Unknown]
  - Sleep disorder [Unknown]
  - Peripheral swelling [Recovering/Resolving]
  - Gait inability [Unknown]
